FAERS Safety Report 14323527 (Version 1)
Quarter: 2017Q4

REPORT INFORMATION
  Report Type: Spontaneous
  Country: US (occurrence: US)
  Receive Date: 20171226
  Receipt Date: 20171226
  Transmission Date: 20180321
  Serious: Yes (Other)
  Sender: FDA-Public Use
  Company Number: US-BION-006853

PATIENT
  Age: 57 Year
  Sex: Female

DRUGS (3)
  1. ALEVE [Suspect]
     Active Substance: NAPROXEN SODIUM
     Indication: CANCER PAIN
     Dosage: DOSAGE: 1 MAYBE 2
     Route: 048
  2. NALTREXONE [Concomitant]
     Active Substance: NALTREXONE
  3. VISCUM ALBUM [Concomitant]
     Active Substance: VISCUM ALBUM FRUITING TOP

REACTIONS (6)
  - Epistaxis [Recovered/Resolved]
  - Incorrect drug administration duration [Not Recovered/Not Resolved]
  - Product use in unapproved indication [Not Recovered/Not Resolved]
  - Rectal haemorrhage [Recovered/Resolved]
  - Drug prescribing error [Not Recovered/Not Resolved]
  - Dysphagia [Unknown]
